FAERS Safety Report 6588281-X (Version None)
Quarter: 2010Q1

REPORT INFORMATION
  Report Type: 
  Country: None (occurrence: None)
  Receive Date: 20100217
  Receipt Date: 20100217
  Transmission Date: 20100710
  Serious: Yes (Hospitalization)
  Sender: FDA-Public Use
  Company Number: None

PATIENT
  Age: 61 Year
  Sex: Male
  Weight: 85.3 kg

DRUGS (1)
  1. LISINOPRIL [Suspect]
     Indication: ANGIOEDEMA
     Dates: start: 20091017, end: 20091124

REACTIONS (1)
  - ANGIOEDEMA [None]
